FAERS Safety Report 8241850-3 (Version None)
Quarter: 2012Q1

REPORT INFORMATION
  Report Type: 
  Country: None (occurrence: None)
  Receive Date: 20120328
  Receipt Date: 20120315
  Transmission Date: 20120608
  Serious: Yes (Death)
  Sender: FDA-Public Use
  Company Number: US-MYLANLABS-2010S1012165

PATIENT
  Age: 49 Year
  Sex: Male
  Weight: 101.61 kg

DRUGS (11)
  1. FENTANYL-100 [Suspect]
     Indication: PAIN
     Dosage: Q48H
     Route: 062
     Dates: start: 20071001, end: 20071111
  2. IMIPRAMINE [Suspect]
  3. LORAZEPAM [Concomitant]
     Dosage: AS NEEDED
  4. MIRTAZAPINE [Concomitant]
  5. METOPROLOL SUCCINATE [Concomitant]
  6. AMPHETAMINES [Concomitant]
  7. LISINOPRIL [Concomitant]
  8. OXYCODONE HCL [Concomitant]
     Dosage: AS NEEDED
  9. OMEPRAZOLE [Concomitant]
  10. INDOMETHACIN [Concomitant]
     Dosage: AS NEEDED
  11. FENTANYL-100 [Suspect]
     Indication: HEADACHE
     Dosage: Q48H
     Route: 062
     Dates: start: 20071001, end: 20071111

REACTIONS (1)
  - TOXICITY TO VARIOUS AGENTS [None]
